FAERS Safety Report 14557430 (Version 1)
Quarter: 2018Q1

REPORT INFORMATION
  Report Type: Spontaneous
  Country: RU (occurrence: RU)
  Receive Date: 20180221
  Receipt Date: 20180221
  Transmission Date: 20180509
  Serious: Yes (Other)
  Sender: FDA-Public Use
  Company Number: RU-ROCHE-2070556

PATIENT
  Age: 58 Year
  Sex: Female

DRUGS (7)
  1. CYCLOPHOSPHAMIDE. [Suspect]
     Active Substance: CYCLOPHOSPHAMIDE
     Indication: B-CELL LYMPHOMA
     Dosage: 9 CYCLES OF THE THERAPY
     Route: 065
     Dates: start: 201604, end: 201612
  2. PREDNISOLONE. [Suspect]
     Active Substance: PREDNISOLONE
     Indication: B-CELL LYMPHOMA
     Dosage: 9 CYCLES OF THE THERAPY
     Route: 065
     Dates: start: 201604, end: 201612
  3. BENDAMUSTINE [Suspect]
     Active Substance: BENDAMUSTINE
     Indication: B-CELL LYMPHOMA RECURRENT
     Dosage: 6 CYCLES OF THE THERAPY
     Route: 065
     Dates: start: 201705, end: 201712
  4. DOXORUBICIN [Suspect]
     Active Substance: DOXORUBICIN
     Indication: B-CELL LYMPHOMA
     Dosage: 9 CYCLES OF THE THERAPY
     Route: 065
     Dates: start: 201604, end: 201612
  5. VINCRISTINE [Suspect]
     Active Substance: VINCRISTINE
     Indication: B-CELL LYMPHOMA
     Dosage: 9 CYCLES OF THE THERAPY
     Route: 065
     Dates: start: 201604, end: 201612
  6. GAZYVA [Suspect]
     Active Substance: OBINUTUZUMAB
     Indication: B-CELL LYMPHOMA RECURRENT
     Dosage: 6 CYCLES OF THE THERAPY
     Route: 065
     Dates: start: 201705, end: 201712
  7. MABTHERA [Suspect]
     Active Substance: RITUXIMAB
     Indication: B-CELL LYMPHOMA
     Dosage: 9 CYCLES OF THE THERAPY
     Route: 065
     Dates: start: 201604, end: 201612

REACTIONS (3)
  - Drug ineffective [Unknown]
  - Body temperature increased [Recovered/Resolved]
  - B-cell lymphoma recurrent [Not Recovered/Not Resolved]
